FAERS Safety Report 18666956 (Version 2)
Quarter: 2021Q1

REPORT INFORMATION
  Report Type: Spontaneous
  Country: IN (occurrence: IN)
  Receive Date: 20201228
  Receipt Date: 20210112
  Transmission Date: 20210419
  Serious: No
  Sender: FDA-Public Use
  Company Number: IN-LUPIN PHARMACEUTICALS INC.-2020-10801

PATIENT
  Age: 28 Year
  Sex: Male
  Weight: 54 kg

DRUGS (2)
  1. COMBUTOL TAB UNCOATED 800 MG [Suspect]
     Active Substance: ETHAMBUTOL HYDROCHLORIDE
     Indication: PNEUMONIA
     Dosage: 6 DOSAGE FORM, QD, 6 TABLETS IN THE EVENING
     Route: 048
     Dates: start: 20201207
  2. R?CINEX [Concomitant]
     Active Substance: ISONIAZID\RIFAMPIN
     Indication: PNEUMONIA
     Dosage: UNK, BID
     Route: 065

REACTIONS (3)
  - Product physical issue [Unknown]
  - Poor quality product administered [Unknown]
  - Pyrexia [Recovered/Resolved]

NARRATIVE: CASE EVENT DATE: 202012
